FAERS Safety Report 8353045-3 (Version None)
Quarter: 2012Q2

REPORT INFORMATION
  Report Type: 
  Country: None (occurrence: None)
  Receive Date: 20120511
  Receipt Date: 20120502
  Transmission Date: 20120825
  Serious: Yes (Death, Hospitalization, Other)
  Sender: FDA-Public Use
  Company Number: CA-SANOFI-AVENTIS-2011SA075140

PATIENT
  Age: 64 Year
  Sex: Male

DRUGS (10)
  1. BLINDED THERAPY [Suspect]
     Indication: TYPE 2 DIABETES MELLITUS
     Dates: start: 20101103, end: 20120303
  2. ASPIRIN [Concomitant]
  3. LASIX [Suspect]
     Dates: end: 20111020
  4. METOLAZONE [Suspect]
     Dates: end: 20111020
  5. METFORMIN HCL [Suspect]
     Indication: TYPE 2 DIABETES MELLITUS
     Dates: end: 20110201
  6. NOVORAPID [Suspect]
     Indication: TYPE 2 DIABETES MELLITUS
  7. NPH INSULIN [Suspect]
     Indication: TYPE 2 DIABETES MELLITUS
  8. PLACEBO [Suspect]
     Indication: TYPE 2 DIABETES MELLITUS
     Dates: start: 20101103
  9. TYLENOL (CAPLET) [Concomitant]
     Dates: start: 20111014, end: 20111021
  10. METFORMIN HCL [Suspect]
     Dates: start: 20110201

REACTIONS (8)
  - CARDIOGENIC SHOCK [None]
  - RENAL FAILURE ACUTE [None]
  - ACUTE PRERENAL FAILURE [None]
  - DYSPNOEA [None]
  - CARDIAC FAILURE CONGESTIVE [None]
  - HEPATIC FUNCTION ABNORMAL [None]
  - BACK PAIN [None]
  - PNEUMONIA [None]
